FAERS Safety Report 10190327 (Version 2)
Quarter: 2014Q3

REPORT INFORMATION
  Report Type: Spontaneous
  Country: US (occurrence: US)
  Receive Date: 20140522
  Receipt Date: 20140916
  Transmission Date: 20150326
  Serious: Yes (Hospitalization, Other)
  Sender: FDA-Public Use
  Company Number: US-ABBVIE-14P-163-1237830-00

PATIENT
  Age: 51 Year
  Sex: Male
  Weight: 89.44 kg

DRUGS (6)
  1. OMEPRAZOLE. [Concomitant]
     Active Substance: OMEPRAZOLE
     Indication: DYSPEPSIA
  2. FLEXERIL [Concomitant]
     Active Substance: CYCLOBENZAPRINE HYDROCHLORIDE
     Indication: BONE DISORDER
  3. CLOPIDROGEL SANDOZ [Concomitant]
     Indication: MYOCARDIAL INFARCTION
     Dates: start: 20140419
  4. ANDROGEL [Suspect]
     Active Substance: TESTOSTERONE
     Indication: BLOOD TESTOSTERONE DECREASED
     Route: 061
     Dates: start: 1999, end: 20140416
  5. RELAFEN [Concomitant]
     Active Substance: NABUMETONE
     Indication: INTERVERTEBRAL DISCITIS
  6. MORPHINE [Concomitant]
     Active Substance: MORPHINE
     Indication: BACK PAIN

REACTIONS (3)
  - White blood cell count increased [Unknown]
  - Coronary artery occlusion [Unknown]
  - Myocardial infarction [Recovering/Resolving]

NARRATIVE: CASE EVENT DATE: 201404
